FAERS Safety Report 7319744-7 (Version None)
Quarter: 2011Q1

REPORT INFORMATION
  Report Type: 
  Country: None (occurrence: None)
  Receive Date: 20110228
  Receipt Date: 20100831
  Transmission Date: 20110831
  Serious: Yes (Hospitalization)
  Sender: FDA-Public Use
  Company Number: A0879268A

PATIENT
  Sex: Female

DRUGS (2)
  1. ARICEPT [Concomitant]
  2. LAMOTRIGINE [Suspect]
     Dosage: 100MG TWICE PER DAY
     Route: 048

REACTIONS (2)
  - CONVULSION [None]
  - DRUG INEFFECTIVE [None]
